FAERS Safety Report 7826613-2 (Version None)
Quarter: 2011Q4

REPORT INFORMATION
  Report Type: 
  Country: None (occurrence: None)
  Receive Date: 20111020
  Receipt Date: 20111010
  Transmission Date: 20120403
  Serious: Yes (Other)
  Sender: FDA-Public Use
  Company Number: FR-JNJFOC-20110811284

PATIENT
  Sex: Male
  Weight: 62 kg

DRUGS (2)
  1. RISPERDAL CONSTA [Suspect]
     Indication: PRODUCT USED FOR UNKNOWN INDICATION
     Route: 048
  2. RISPERDAL CONSTA [Suspect]
     Route: 048

REACTIONS (3)
  - DELIRIUM [None]
  - INCORRECT ROUTE OF DRUG ADMINISTRATION [None]
  - ANXIETY [None]
